FAERS Safety Report 4420065-0 (Version None)
Quarter: 2004Q3

REPORT INFORMATION
  Report Type: 
  Country: None (occurrence: None)
  Receive Date: 20040804
  Receipt Date: 20040709
  Transmission Date: 20050211
  Serious: Yes (Hospitalization, Other)
  Sender: FDA-Public Use
  Company Number: CA_040707125

PATIENT
  Age: 24 Year
  Sex: Male
  Weight: 68 kg

DRUGS (1)
  1. ZYPREXA [Suspect]
     Indication: INSOMNIA
     Dosage: 10 MG DAY
     Dates: start: 20010301, end: 20030501

REACTIONS (11)
  - AMNESIA [None]
  - BEDRIDDEN [None]
  - BRAIN DAMAGE [None]
  - CONVULSION [None]
  - FALL [None]
  - GRAND MAL CONVULSION [None]
  - LOSS OF CONSCIOUSNESS [None]
  - MOVEMENT DISORDER [None]
  - SOMNOLENCE [None]
  - WEIGHT DECREASED [None]
  - WEIGHT INCREASED [None]
